FAERS Safety Report 24460069 (Version 1)
Quarter: 2024Q4

REPORT INFORMATION
  Report Type: Report from Study
  Country: US (occurrence: US)
  Receive Date: 20241018
  Receipt Date: 20241018
  Transmission Date: 20250114
  Serious: No
  Sender: ROCHE
  Company Number: US-ROCHE-3535040

PATIENT
  Age: 49 Year
  Sex: Male

DRUGS (1)
  1. RITUXAN [Suspect]
     Active Substance: RITUXIMAB
     Indication: Non-Hodgkin^s lymphoma
     Dosage: 50 ML VIAL AND 10ML VIAL  INFUSE 900MG INTRAVENOUSLY EVERY 3 WEEK(S) X 6 CYCLES
     Route: 041

REACTIONS (2)
  - Product prescribing error [Unknown]
  - No adverse event [Unknown]
